FAERS Safety Report 18669412 (Version 3)
Quarter: 2021Q2

REPORT INFORMATION
  Report Type: Report from Study
  Country: DE (occurrence: DE)
  Receive Date: 20201228
  Receipt Date: 20210511
  Transmission Date: 20210717
  Serious: Yes (Hospitalization)
  Sender: FDA-Public Use
  Company Number: DE-ROCHE-2181337

PATIENT
  Age: 40 Year
  Sex: Female
  Weight: 92 kg

DRUGS (8)
  1. PERTUZUMAB. [Suspect]
     Active Substance: PERTUZUMAB
     Indication: HER2 POSITIVE BREAST CANCER
     Dosage: LOADING DOSE
     Route: 042
     Dates: start: 20180319
  2. OPIPRAMOL [Concomitant]
     Active Substance: OPIPRAMOL
     Dosage: DOSE: 6 DROPS
     Dates: start: 20180811
  3. EPIRUBICIN [Suspect]
     Active Substance: EPIRUBICIN
     Indication: HER2 POSITIVE BREAST CANCER
     Dosage: 120 MG/SQM (AS PER PROTOCOL), MOST RECENT DOSE: 30/JUL/2018
     Route: 042
     Dates: start: 20180730
  4. TRASTUZUMAB. [Suspect]
     Active Substance: TRASTUZUMAB
     Dosage: 552 MG, DATE OF LAST DOSE: 22/MAY/2018
     Route: 042
  5. PACLITAXEL. [Suspect]
     Active Substance: PACLITAXEL
     Indication: HER2 POSITIVE BREAST CANCER
     Dosage: 80 MG/SQM (AS PER PROTOCOL), SUBSEQUENT DOSE RECEIVED ON 19/MAR/2018. DATE OF LAST DOSE: 11/JUN/2018
     Route: 042
     Dates: start: 20180318
  6. CYCLOPHOSPHAMIDE. [Suspect]
     Active Substance: CYCLOPHOSPHAMIDE
     Indication: HER2 POSITIVE BREAST CANCER
     Dosage: 600 MG/SQM (AS PER PROTOCOL), MOST RECENT DOSE: 30/JUL/2018
     Route: 042
     Dates: start: 20180730
  7. TRASTUZUMAB. [Suspect]
     Active Substance: TRASTUZUMAB
     Indication: HER2 POSITIVE BREAST CANCER
     Dosage: LOADING DOSE. 728 MG
     Route: 042
     Dates: start: 20180319
  8. PERTUZUMAB. [Suspect]
     Active Substance: PERTUZUMAB
     Dosage: DATE OF LAST DOSE: 22/MAY/2018
     Route: 042

REACTIONS (3)
  - Crohn^s disease [Recovered/Resolved]
  - Constipation [Recovering/Resolving]
  - Terminal ileitis [Recovered/Resolved]

NARRATIVE: CASE EVENT DATE: 20180811
